FAERS Safety Report 8572224 (Version 3)
Quarter: 2014Q1

REPORT INFORMATION
  Report Type: Report from Study
  Country: DE (occurrence: DE)
  Receive Date: 20120521
  Receipt Date: 20140217
  Transmission Date: 20141002
  Serious: Yes (Death, Hospitalization)
  Sender: FDA-Public Use
  Company Number: DE-ROCHE-1069098

PATIENT
  Age: 71 Year
  Sex: Female

DRUGS (5)
  1. RITUXIMAB [Suspect]
     Indication: RHEUMATOID ARTHRITIS
     Route: 065
     Dates: start: 20100615, end: 20100630
  2. RITUXIMAB [Suspect]
     Route: 065
     Dates: start: 20120503, end: 20120503
  3. TOCILIZUMAB [Suspect]
     Indication: RHEUMATOID ARTHRITIS
     Dosage: TOTAL 4 DOSE
     Route: 065
     Dates: start: 20090211, end: 201005
  4. PREDNISOLONE [Suspect]
     Indication: RHEUMATOID ARTHRITIS
     Route: 065
  5. CYCLOPHOSPHAMID [Concomitant]
     Route: 065
     Dates: start: 200903, end: 201001

REACTIONS (1)
  - Vulval cancer metastatic [Fatal]
